FAERS Safety Report 9171234 (Version 4)
Quarter: 2013Q3

REPORT INFORMATION
  Report Type: Report from Study
  Country: CA (occurrence: CA)
  Receive Date: 20130319
  Receipt Date: 20130916
  Transmission Date: 20140515
  Serious: Yes (Death, Hospitalization)
  Sender: FDA-Public Use
  Company Number: CA-ROCHE-1105294

PATIENT
  Age: 68 Year
  Sex: Female
  Weight: 89 kg

DRUGS (23)
  1. TOCILIZUMAB [Suspect]
     Indication: RHEUMATOID ARTHRITIS
     Dosage: MOST RECENT DOSE PRIOR TO SAE:10/JUL/2012
     Route: 042
     Dates: start: 20111228
  2. BLINDED TOCILIZUMAB [Suspect]
     Indication: RHEUMATOID ARTHRITIS
     Dosage: MOST RECENT DOSE PRIOR TO SAE: 22/NOV/2011
     Route: 042
     Dates: start: 20110705
  3. BLINDED TOCILIZUMAB [Suspect]
     Indication: RHEUMATOID ARTHRITIS
     Dosage: MOST RECENT DOSE PRIOR TO SAE: 13/DEC/2011
     Route: 058
     Dates: start: 20110705
  4. HEPARINE [Suspect]
     Indication: PRODUCT USED FOR UNKNOWN INDICATION
     Dosage: 5000 UNITS
     Route: 058
     Dates: start: 20120820, end: 20120830
  5. METFORMIN [Concomitant]
     Route: 048
     Dates: start: 2005, end: 20120820
  6. AMLODIPINE [Concomitant]
     Route: 048
     Dates: start: 2000, end: 20120820
  7. APO-RAMIPRIL [Concomitant]
     Route: 048
     Dates: start: 2000, end: 20120820
  8. CRESTOR [Concomitant]
     Route: 048
     Dates: start: 2000, end: 20120820
  9. GLICLAZIDE [Concomitant]
     Route: 048
     Dates: start: 2000, end: 20120820
  10. HYDROCHLOROTHIAZIDE [Concomitant]
     Route: 048
     Dates: start: 2000, end: 20120820
  11. OMEPRAZOLE [Concomitant]
     Route: 048
     Dates: start: 2002
  12. APO-FENO-SUPER [Concomitant]
     Route: 048
     Dates: start: 2000, end: 20120820
  13. GABAPENTIN [Concomitant]
     Route: 048
     Dates: start: 2008
  14. GABAPENTIN [Concomitant]
     Route: 048
     Dates: start: 2008
  15. WARFARIN [Concomitant]
     Route: 048
     Dates: start: 2007, end: 20120820
  16. PAROXETINE [Concomitant]
     Route: 048
     Dates: start: 1989
  17. PLAQUENIL [Concomitant]
     Indication: RHEUMATOID ARTHRITIS
     Route: 048
     Dates: start: 20120320, end: 20120820
  18. PREDNISONE [Concomitant]
     Indication: RHEUMATOID ARTHRITIS
     Route: 048
     Dates: start: 20120612, end: 20120820
  19. PREDNISONE [Concomitant]
     Route: 048
     Dates: start: 20120820, end: 20120824
  20. PREDNISONE [Concomitant]
     Route: 048
     Dates: start: 20120825, end: 20120831
  21. PRO-CEFADROXIL [Concomitant]
     Route: 048
     Dates: start: 20120604, end: 20120820
  22. CIPRO [Concomitant]
     Route: 048
     Dates: start: 20120803, end: 20120811
  23. INSULIN-TORONTO [Concomitant]
     Dosage: 100 UNITS
     Route: 042
     Dates: start: 20120820, end: 20120831

REACTIONS (2)
  - Acute respiratory distress syndrome [Fatal]
  - Thrombocytopenia [Unknown]
